FAERS Safety Report 7622263-1 (Version None)
Quarter: 2011Q3

REPORT INFORMATION
  Report Type: 
  Country: None (occurrence: None)
  Receive Date: 20110720
  Receipt Date: 20101227
  Transmission Date: 20111222
  Serious: Yes (Other)
  Sender: FDA-Public Use
  Company Number: JP-BAYER-2010-000613

PATIENT
  Age: 77 Year
  Sex: Male
  Weight: 53 kg

DRUGS (8)
  1. MAGNEVIST [Suspect]
     Indication: PROSTATE CANCER
  2. EVIPROSTAT [Concomitant]
     Indication: BENIGN PROSTATIC HYPERPLASIA
     Dosage: DAILY DOSE 3 DF
     Route: 048
     Dates: start: 20100208
  3. NIVADIL [Concomitant]
     Route: 048
  4. BEZATOL [Concomitant]
     Route: 048
  5. VERAPAMIL HCL [Concomitant]
     Route: 065
  6. TAMSULOSIN HCL [Concomitant]
     Indication: BENIGN PROSTATIC HYPERPLASIA
     Dosage: DAILY DOSE .2 MG
     Route: 048
     Dates: start: 20100913
  7. MAGNEVIST [Suspect]
     Indication: NUCLEAR MAGNETIC RESONANCE IMAGING
     Dosage: 10 ML, UNK
     Route: 042
     Dates: start: 20101129, end: 20101129
  8. DIGOXIN [Concomitant]
     Route: 065

REACTIONS (3)
  - EAR PAIN [None]
  - APHONIA [None]
  - LARYNGEAL OEDEMA [None]
